FAERS Safety Report 6837292-5 (Version None)
Quarter: 2010Q3

REPORT INFORMATION
  Report Type: 
  Country: None (occurrence: None)
  Receive Date: 20100713
  Receipt Date: 20070507
  Transmission Date: 20110219
  Serious: Yes (Other)
  Sender: FDA-Public Use
  Company Number: US-PFIZER INC-2007038150

PATIENT
  Sex: Female
  Weight: 95.454 kg

DRUGS (8)
  1. CHANTIX [Suspect]
     Indication: SMOKING CESSATION THERAPY
     Dosage: EVERY DAY
     Dates: start: 20070501
  2. FENTANYL [Suspect]
     Indication: PAIN
     Dates: start: 20070430
  3. ENTOCORT EC [Concomitant]
  4. CYMBALTA [Concomitant]
  5. HYDROCODONE BITARTRATE [Concomitant]
  6. FOLGARD [Concomitant]
  7. LEXAPRO [Concomitant]
  8. AZITHROMYCIN [Concomitant]

REACTIONS (8)
  - DIZZINESS [None]
  - DYSPHAGIA [None]
  - ERUCTATION [None]
  - FLUID RETENTION [None]
  - HYPERHIDROSIS [None]
  - NAUSEA [None]
  - SOMNOLENCE [None]
  - VOMITING [None]
